FAERS Safety Report 7082082-4 (Version None)
Quarter: 2010Q4

REPORT INFORMATION
  Report Type: 
  Country: None (occurrence: None)
  Receive Date: 20101103
  Receipt Date: 20101028
  Transmission Date: 20110411
  Serious: No
  Sender: FDA-Public Use
  Company Number: US-PFIZER INC-2010113269

PATIENT
  Sex: Female
  Weight: 54 kg

DRUGS (1)
  1. NEURONTIN [Suspect]
     Dosage: 150 MG, AS NEEDED
     Route: 048
     Dates: start: 20010301

REACTIONS (1)
  - SOMNOLENCE [None]
